FAERS Safety Report 5721595-1 (Version None)
Quarter: 2008Q2

REPORT INFORMATION
  Report Type: 
  Country: None (occurrence: None)
  Receive Date: 20080429
  Receipt Date: 20070226
  Transmission Date: 20081010
  Serious: No
  Sender: FDA-Public Use
  Company Number: US-ASTRAZENECA-2007UW03787

PATIENT
  Age: 87 Year
  Sex: Male
  Weight: 74.8 kg

DRUGS (9)
  1. NEXIUM [Suspect]
     Indication: GASTROOESOPHAGEAL REFLUX DISEASE
     Route: 048
  2. NEXIUM [Suspect]
     Route: 048
  3. PENICILLIN [Concomitant]
  4. LIPITOR [Concomitant]
  5. TYLENOL [Concomitant]
  6. MULTI-VITAMIN [Concomitant]
  7. LISINOPRIL [Concomitant]
     Route: 048
  8. FLUOXETINE [Concomitant]
  9. ATENOLOL [Concomitant]
     Route: 048

REACTIONS (5)
  - DRUG INEFFECTIVE [None]
  - DYSPHAGIA [None]
  - GASTROOESOPHAGEAL REFLUX DISEASE [None]
  - PAIN [None]
  - THROAT IRRITATION [None]
